FAERS Safety Report 25206368 (Version 2)
Quarter: 2025Q3

REPORT INFORMATION
  Report Type: Spontaneous
  Country: EU (occurrence: EU)
  Receive Date: 20250417
  Receipt Date: 20250803
  Transmission Date: 20251020
  Serious: Yes (Hospitalization)
  Sender: ALEXION PHARMACEUTICALS
  Company Number: None

PATIENT
  Age: 83 Year
  Sex: Male

DRUGS (7)
  1. TICAGRELOR [Suspect]
     Active Substance: TICAGRELOR
     Dates: start: 20250325, end: 20250325
  2. TICAGRELOR [Suspect]
     Active Substance: TICAGRELOR
     Dates: start: 20250325
  3. ASPIRIN LYSINE [Suspect]
     Active Substance: ASPIRIN LYSINE
     Indication: Acute coronary syndrome
     Dates: start: 20250325, end: 20250325
  4. KARDEGIC [Suspect]
     Active Substance: ASPIRIN DL-LYSINE
     Indication: Acute coronary syndrome
  5. HEPARIN [Suspect]
     Active Substance: HEPARIN SODIUM
     Indication: Acute coronary syndrome
     Dates: start: 20250325, end: 20250325
  6. LOVENOX [Suspect]
     Active Substance: ENOXAPARIN SODIUM
     Indication: Acute coronary syndrome
     Dates: start: 20250325, end: 20250325
  7. LOVENOX [Suspect]
     Active Substance: ENOXAPARIN SODIUM
     Dates: start: 20250326

REACTIONS (2)
  - Vascular stent thrombosis [Recovering/Resolving]
  - Drug ineffective [Recovering/Resolving]

NARRATIVE: CASE EVENT DATE: 20250326
